FAERS Safety Report 6508886-1 (Version None)
Quarter: 2009Q4

REPORT INFORMATION
  Report Type: 
  Country: None (occurrence: None)
  Receive Date: 20091221
  Receipt Date: 20090810
  Transmission Date: 20100525
  Serious: No
  Sender: FDA-Public Use
  Company Number: US-ASTRAZENECA-2009SE07586

PATIENT
  Age: 78 Year
  Sex: Female
  Weight: 81 kg

DRUGS (6)
  1. CRESTOR [Suspect]
     Route: 048
     Dates: start: 20080101, end: 20090501
  2. CRESTOR [Suspect]
     Route: 048
     Dates: start: 20090501
  3. NEXIUM [Suspect]
     Route: 065
  4. METOPROLOL TARTRATE [Concomitant]
  5. PROPAFENONE [Concomitant]
  6. METFORMIN HCL [Concomitant]

REACTIONS (2)
  - MUSCLE SPASMS [None]
  - PAIN IN EXTREMITY [None]
